FAERS Safety Report 8851388 (Version 2)
Quarter: 2015Q2

REPORT INFORMATION
  Report Type: Report from Study
  Country: US (occurrence: US)
  Receive Date: 20121022
  Receipt Date: 20150617
  Transmission Date: 20150821
  Serious: Yes (Death)
  Sender: FDA-Public Use
  Company Number: US-ROCHE-1134162

PATIENT
  Age: 49 Year
  Sex: Female

DRUGS (2)
  1. XELODA [Suspect]
     Active Substance: CAPECITABINE
     Indication: PANCREATIC CARCINOMA
     Dosage: 500MGX4TAB, BID FOR 14DAYS AND OFF 7 DAYS
     Route: 048
     Dates: start: 20100712, end: 20100801
  2. XELODA [Suspect]
     Active Substance: CAPECITABINE
     Indication: METASTASES TO LIVER

REACTIONS (2)
  - Disease progression [Fatal]
  - Off label use [Unknown]

NARRATIVE: CASE EVENT DATE: 20100807
